FAERS Safety Report 23332999 (Version 1)
Quarter: 2023Q4

REPORT INFORMATION
  Report Type: Spontaneous
  Country: FR (occurrence: FR)
  Receive Date: 20231222
  Receipt Date: 20231222
  Transmission Date: 20240110
  Serious: Yes (Other)
  Sender: FDA-Public Use
  Company Number: FR-SUN PHARMACEUTICAL INDUSTRIES LTD-2023RR-424736

PATIENT
  Sex: Male

DRUGS (3)
  1. RISPERIDONE [Suspect]
     Active Substance: RISPERIDONE
     Indication: Product used for unknown indication
     Dosage: 30 MILLIGRAM, IN TOTAL
     Route: 048
     Dates: start: 20230803
  2. ZUCLOPENTHIXOL [Suspect]
     Active Substance: ZUCLOPENTHIXOL
     Indication: Product used for unknown indication
     Dosage: 1 DOSAGE FORM, IN TOTAL
     Route: 048
     Dates: start: 20230803
  3. LOXAPINE [Suspect]
     Active Substance: LOXAPINE
     Indication: Product used for unknown indication
     Dosage: 1 DOSAGE FORM, IN TOTAL
     Route: 048
     Dates: start: 20230803

REACTIONS (3)
  - Somnolence [Unknown]
  - Wrong product administered [Recovered/Resolved]
  - Salivary hypersecretion [Unknown]

NARRATIVE: CASE EVENT DATE: 20230803
